FAERS Safety Report 25955047 (Version 1)
Quarter: 2025Q4

REPORT INFORMATION
  Report Type: Spontaneous
  Country: CH (occurrence: CH)
  Receive Date: 20251024
  Receipt Date: 20251024
  Transmission Date: 20260118
  Serious: Yes (Other)
  Sender: ROCHE
  Company Number: CH-ROCHE-10000414178

PATIENT

DRUGS (4)
  1. AVASTIN [Suspect]
     Active Substance: BEVACIZUMAB
     Indication: Hereditary non-polyposis colorectal cancer syndrome
     Route: 065
  2. TRAMETINIB [Concomitant]
     Active Substance: TRAMETINIB
  3. NIVOLUMAB [Concomitant]
     Active Substance: NIVOLUMAB
  4. RELATLIMAB [Concomitant]
     Active Substance: RELATLIMAB

REACTIONS (2)
  - Neoplasm progression [Unknown]
  - Off label use [Unknown]
